FAERS Safety Report 10252047 (Version 1)
Quarter: 2014Q2

REPORT INFORMATION
  Report Type: Spontaneous
  Country: CN (occurrence: CN)
  Receive Date: 20140623
  Receipt Date: 20140623
  Transmission Date: 20141212
  Serious: Yes (Other)
  Sender: FDA-Public Use
  Company Number: PHHY2014CN076310

PATIENT
  Age: 58 Year
  Sex: Male

DRUGS (5)
  1. CARBAMAZEPINE [Suspect]
     Indication: CONVULSION
     Dosage: 0.1 G, TID
     Route: 048
  2. VALPROIC ACID [Suspect]
     Indication: EPILEPSY
     Route: 048
  3. ATROPINE SULFATE [Suspect]
  4. THEOPHYLLINE [Suspect]
  5. SALBUTAMOL [Suspect]

REACTIONS (7)
  - Amaurosis [Unknown]
  - Atrioventricular block complete [Unknown]
  - Cardiac arrest [Unknown]
  - Heart rate abnormal [Unknown]
  - Syncope [Unknown]
  - Convulsion [Recovered/Resolved]
  - Drug ineffective [Unknown]
